FAERS Safety Report 4756041-8 (Version None)
Quarter: 2005Q3

REPORT INFORMATION
  Report Type: 
  Country: None (occurrence: None)
  Receive Date: 20050830
  Receipt Date: 20050425
  Transmission Date: 20060218
  Serious: Yes (Other)
  Sender: FDA-Public Use
  Company Number: US-BRISTOL-MYERS SQUIBB COMPANY-12945499

PATIENT
  Age: 80 Year
  Sex: Female
  Weight: 70 kg

DRUGS (6)
  1. COUMADIN [Suspect]
     Indication: ATRIAL FIBRILLATION
     Dosage: PT ON + OFF THERAPY SINCE 2001; CONSTANTLY SINCE JAN-2004 TO DATE
     Dates: start: 20010101
  2. COUMADIN [Suspect]
     Indication: CEREBROVASCULAR ACCIDENT
     Dosage: PT ON + OFF THERAPY SINCE 2001; CONSTANTLY SINCE JAN-2004 TO DATE
     Dates: start: 20010101
  3. COUMADIN [Suspect]
     Indication: CARDIAC ANEURYSM
     Dosage: PT ON + OFF THERAPY SINCE 2001; CONSTANTLY SINCE JAN-2004 TO DATE
     Dates: start: 20010101
  4. COUMADIN [Suspect]
     Indication: INTRACARDIAC THROMBUS
     Dosage: PT ON + OFF THERAPY SINCE 2001; CONSTANTLY SINCE JAN-2004 TO DATE
     Dates: start: 20010101
  5. KLOR-CON [Concomitant]
  6. COREG [Concomitant]

REACTIONS (2)
  - ANEURYSM [None]
  - PRURITUS [None]
